FAERS Safety Report 25134363 (Version 1)
Quarter: 2025Q1

REPORT INFORMATION
  Report Type: Spontaneous
  Country: US (occurrence: US)
  Receive Date: 20250328
  Receipt Date: 20250328
  Transmission Date: 20250408
  Serious: Yes (Other)
  Sender: MYLAN
  Company Number: US-MYLANLABS-2025M1025657

PATIENT
  Age: 63 Year
  Sex: Female

DRUGS (2)
  1. PREDNISONE [Suspect]
     Active Substance: PREDNISONE
     Indication: Pneumonia
  2. DANAZOL [Concomitant]
     Active Substance: DANAZOL
     Indication: Premature ageing

REACTIONS (1)
  - Drug ineffective [Unknown]
